FAERS Safety Report 8868358 (Version 9)
Quarter: 2013Q4

REPORT INFORMATION
  Report Type: Report from Study
  Country: JP (occurrence: JP)
  Receive Date: 20121027
  Receipt Date: 20131202
  Transmission Date: 20140711
  Serious: Yes (Hospitalization, Other)
  Sender: FDA-Public Use
  Company Number: JP-009507513-1210JPN011376

PATIENT
  Age: 58 Year
  Sex: Male
  Weight: 70 kg

DRUGS (59)
  1. PEGINTRON [Suspect]
     Indication: CHRONIC HEPATITIS C
     Dosage: 1.5 MICROGRAM PER KILOGRAM, QW
     Route: 058
     Dates: start: 20120824, end: 20120920
  2. PEGINTRON [Suspect]
     Dosage: 0.75  MICROGRAM PER KILOGRAM, QW
     Route: 058
     Dates: start: 20120921, end: 20120927
  3. PEGINTRON [Suspect]
     Dosage: 1.5  MICROGRAM PER KILOGRAM, QW
     Route: 058
     Dates: start: 20120928, end: 20121004
  4. PEGINTRON [Suspect]
     Dosage: 0.75 MICROGRAM PER KILOGRAM, QW
     Route: 058
     Dates: start: 20121005, end: 20121012
  5. REBETOL [Suspect]
     Indication: CHRONIC HEPATITIS C
     Dosage: 800 MG, QD
     Route: 048
     Dates: start: 20120824, end: 20121015
  6. TELAVIC [Suspect]
     Indication: CHRONIC HEPATITIS C
     Dosage: 2250 MG, QD
     Route: 048
     Dates: start: 20120824, end: 20120902
  7. TELAVIC [Suspect]
     Dosage: 1500 MG, QD
     Route: 048
     Dates: start: 20120903, end: 20121015
  8. TANATRIL [Concomitant]
     Indication: HYPERTENSION
     Dosage: 5 MG, QD
     Route: 048
     Dates: end: 20121018
  9. TANATRIL [Concomitant]
     Dosage: 10 MG, QD
     Route: 048
     Dates: start: 20121019, end: 20121019
  10. TANATRIL [Concomitant]
     Dosage: 5 MG,QD
     Route: 048
     Dates: start: 20121020
  11. MAINTATE [Concomitant]
     Indication: HYPERTENSION
     Dosage: 5 MG, QD
     Route: 048
     Dates: end: 20121018
  12. MAINTATE [Concomitant]
     Dosage: 10 MG, QD
     Route: 048
     Dates: start: 20121019, end: 20121019
  13. MAINTATE [Concomitant]
     Dosage: 5 MG,QD
     Route: 048
     Dates: start: 20121020
  14. TAKEPRON [Concomitant]
     Indication: GASTROOESOPHAGEAL REFLUX DISEASE
     Dosage: 15 MG, QD
     Route: 048
     Dates: end: 20121018
  15. TAKEPRON [Concomitant]
     Dosage: 15 MG, QD
     Route: 048
     Dates: start: 20130108
  16. CONSTAN [Concomitant]
     Indication: ANXIETY DISORDER
     Dosage: 1.2 MG, QD
     Route: 048
     Dates: end: 20121017
  17. CONSTAN [Concomitant]
     Dosage: 2.4 MG, QD
     Route: 048
     Dates: start: 20121019, end: 20121019
  18. CONSTAN [Concomitant]
     Dosage: 1.6 MG,QD
     Route: 048
     Dates: start: 20121020, end: 20121020
  19. CONSTAN [Concomitant]
     Dosage: 1.2 MG, QD
     Route: 048
     Dates: start: 20121021, end: 20121022
  20. CONSTAN [Concomitant]
     Dosage: 1.2 MG, QD
     Route: 048
     Dates: start: 20130108
  21. ZOMIG [Concomitant]
     Indication: HEADACHE
     Dosage: 1 TABLET/DAY AS NEEDED
     Route: 048
     Dates: end: 20121015
  22. ACTOS [Concomitant]
     Indication: DIABETES MELLITUS
     Dosage: 15 MG, QD
     Route: 048
     Dates: end: 20121018
  23. ACTOS [Concomitant]
     Dosage: 15 MG, QD
     Route: 048
     Dates: start: 20121022
  24. PETROLATUM, WHITE [Concomitant]
     Dosage: 20 G, QD, FORMULATION:EXT
     Route: 051
     Dates: start: 20121015, end: 20121015
  25. PETROLATUM, WHITE [Concomitant]
     Dosage: 280 G, QD, EXT-FORMULATION
     Route: 051
     Dates: start: 20121016, end: 20121016
  26. PETROLATUM, WHITE [Concomitant]
     Dosage: 50 G, QD, EXT-FORMULATION
     Route: 051
     Dates: start: 20121018, end: 20121018
  27. PETROLATUM, WHITE [Concomitant]
     Dosage: 125 G, QD, EXT-FORMULATION
     Dates: start: 20121028, end: 20121028
  28. PETROLATUM, WHITE [Concomitant]
     Dosage: 125 G, QD, EXT-FORMULATION
     Route: 051
     Dates: start: 20121108, end: 20121108
  29. PETROLATUM, WHITE [Concomitant]
     Dosage: 100 G, QD, EXT-FORMULATION
     Route: 051
     Dates: start: 20121203, end: 20121203
  30. PETROLATUM, WHITE [Concomitant]
     Dosage: 100 G,QD, FORMULATION:EXT
     Route: 051
     Dates: start: 20121215, end: 20121215
  31. MYSLEE [Concomitant]
     Dosage: 10 MG, QD
     Route: 048
     Dates: start: 20121015, end: 20121017
  32. RESTAMIN [Concomitant]
     Dosage: 30 G, QD
     Route: 061
     Dates: start: 20121015, end: 20121016
  33. SOLDEM 1 [Concomitant]
     Dosage: 500 ML, QD
     Route: 041
     Dates: start: 20121015, end: 20121015
  34. ISOTONIC SODIUM CHLORIDE BIOSEL [Concomitant]
     Dosage: 100 ML, QD
     Route: 041
     Dates: start: 20121015, end: 20121015
  35. ISOTONIC SODIUM CHLORIDE BIOSEL [Concomitant]
     Dosage: 500 ML, QD
     Route: 042
     Dates: start: 20121015, end: 20121024
  36. ISOTONIC SODIUM CHLORIDE BIOSEL [Concomitant]
     Dosage: 120 ML, QD
     Route: 041
     Dates: start: 20121019, end: 20121019
  37. ISOTONIC SODIUM CHLORIDE BIOSEL [Concomitant]
     Dosage: 320 ML, QD
     Route: 041
     Dates: start: 20121020, end: 20121020
  38. ISOTONIC SODIUM CHLORIDE BIOSEL [Concomitant]
     Dosage: 200 ML, QD
     Route: 041
     Dates: start: 20121021, end: 20121025
  39. ISOTONIC SODIUM CHLORIDE BIOSEL [Concomitant]
     Dosage: 1000 ML, QD
     Route: 042
     Dates: start: 20121025, end: 20121025
  40. ISOTONIC SODIUM CHLORIDE BIOSEL [Concomitant]
     Dosage: 500 ML, QD
     Route: 042
     Dates: start: 20121026, end: 20121201
  41. ISOTONIC SODIUM CHLORIDE BIOSEL [Concomitant]
     Dosage: 200 ML, QD
     Route: 041
     Dates: start: 20121102, end: 20121107
  42. ISOTONIC SODIUM CHLORIDE BIOSEL [Concomitant]
     Dosage: 200 ML, QD
     Route: 041
     Dates: start: 20121109, end: 20121122
  43. PRIDOL [Concomitant]
     Dosage: 3 G, QD
     Route: 041
     Dates: start: 20121015, end: 20121017
  44. GASTER [Concomitant]
     Dosage: 1 DF, QD
     Route: 041
     Dates: start: 20121015, end: 20121015
  45. GASTER [Concomitant]
     Dosage: 0.25 DF,QD
     Route: 041
     Dates: start: 20121016, end: 20121016
  46. GASTER [Concomitant]
     Dosage: 0.5 DF,QD
     Route: 041
     Dates: start: 20121017, end: 20121017
  47. GASTER [Concomitant]
     Dosage: 1 DF, QD
     Route: 041
     Dates: start: 20121018, end: 20121020
  48. BFLUID [Concomitant]
     Dosage: 1 DF, QD
     Route: 041
     Dates: start: 20121015, end: 20121015
  49. HUMULIN R [Concomitant]
     Dosage: 1 DF, QD
     Route: 042
     Dates: start: 20121015, end: 20121015
  50. NOVO HEPARIN [Concomitant]
     Dosage: 1 DF, QD
     Route: 042
     Dates: start: 20121015, end: 20121015
  51. NOVO HEPARIN [Concomitant]
     Dosage: 1 DF,QD
     Route: 042
     Dates: start: 20121017, end: 20121019
  52. NOVO HEPARIN [Concomitant]
     Dosage: 2 DF,QD
     Route: 042
     Dates: start: 20121020, end: 20121021
  53. NOVO HEPARIN [Concomitant]
     Dosage: 1 DF,QD
     Route: 042
     Dates: start: 20121022, end: 20121022
  54. NOVO HEPARIN [Concomitant]
     Dosage: 3 DF,QD
     Route: 042
     Dates: start: 20121023, end: 20121023
  55. NOVO HEPARIN [Concomitant]
     Dosage: 1 DF,QD
     Route: 042
     Dates: start: 20121101, end: 20121101
  56. NOVO HEPARIN [Concomitant]
     Dosage: 0.5 DF,QD
     Route: 042
     Dates: start: 20121102, end: 20121103
  57. NOVO HEPARIN [Concomitant]
     Dosage: 1 DF, QD
     Route: 042
     Dates: start: 20121104, end: 20121107
  58. NOVO HEPARIN [Concomitant]
     Dosage: 2 DF, QD
     Route: 042
     Dates: start: 20121108, end: 20121108
  59. NOVO HEPARIN [Concomitant]
     Dosage: 1 DF, QD
     Route: 042
     Dates: start: 20121123, end: 20121201

REACTIONS (4)
  - Stevens-Johnson syndrome [Recovered/Resolved]
  - Renal failure acute [Recovered/Resolved]
  - White blood cell count decreased [Recovered/Resolved]
  - Haemoglobin decreased [Not Recovered/Not Resolved]
